FAERS Safety Report 8081991-7 (Version None)
Quarter: 2012Q1

REPORT INFORMATION
  Report Type: 
  Country: None (occurrence: None)
  Receive Date: 20120130
  Receipt Date: 20120126
  Transmission Date: 20120608
  Serious: Yes (Death)
  Sender: FDA-Public Use
  Company Number: IT-ABBOTT-12P-083-0898433-00

PATIENT
  Age: 18 Year
  Sex: Male
  Weight: 100 kg

DRUGS (2)
  1. DEPAKENE [Suspect]
     Indication: EPILEPSY
     Dosage: 6 DOSAGE FORM; DAILY
     Route: 048
  2. FRISIUM [Suspect]
     Indication: EPILEPSY
     Dosage: 3 DOSAGE FORM: DAILY
     Route: 048

REACTIONS (1)
  - DEATH [None]
